FAERS Safety Report 8882431 (Version 1)
Quarter: 2012Q4

REPORT INFORMATION
  Report Type: 
  Country: ES (occurrence: ES)
  Receive Date: 20121102
  Receipt Date: 20121102
  Transmission Date: 20130627
  Serious: Yes (Hospitalization)
  Sender: FDA-Public Use
  Company Number: ES-SANOFI-AVENTIS-2012SA078129

PATIENT
  Age: 61 Year
  Sex: Male

DRUGS (1)
  1. ARAVA [Suspect]
     Indication: PSORIATIC ARTHROPATHY
     Route: 048
     Dates: start: 20120529, end: 20120806

REACTIONS (2)
  - Cholangitis [Not Recovered/Not Resolved]
  - Sepsis [Not Recovered/Not Resolved]
